FAERS Safety Report 8228848 (Version 7)
Quarter: 2016Q4

REPORT INFORMATION
  Report Type: Spontaneous
  Country: JP (occurrence: JP)
  Receive Date: 20111104
  Receipt Date: 20161003
  Transmission Date: 20170207
  Serious: Yes (Hospitalization, Disabling, Other)
  Sender: FDA-Public Use
  Company Number: JP-BRISTOL-MYERS SQUIBB COMPANY-15971237

PATIENT
  Age: 67 Year
  Sex: Male
  Weight: 51 kg

DRUGS (15)
  1. MYSLEE [Concomitant]
     Active Substance: ZOLPIDEM TARTRATE
     Indication: INSOMNIA
     Dosage: 10 MG, QD
     Route: 048
     Dates: start: 20110407, end: 20110804
  2. ABILIFY [Interacting]
     Active Substance: ARIPIPRAZOLE
     Dosage: 9 MG, QD
     Route: 048
     Dates: start: 20110908, end: 20110913
  3. KLARICID                           /00984601/ [Interacting]
     Active Substance: CLARITHROMYCIN
     Indication: UPPER RESPIRATORY TRACT INFLAMMATION
     Dosage: 200 MG, BID
     Route: 048
     Dates: start: 20110716, end: 20110720
  4. PYRETHIA                           /00033002/ [Concomitant]
     Indication: PARKINSONISM
     Dosage: 25 MG, QD
     Route: 048
     Dates: start: 20110407, end: 20110804
  5. CLARITH [Concomitant]
     Active Substance: CLARITHROMYCIN
     Indication: UPPER RESPIRATORY TRACT INFECTION
  6. ABILIFY [Interacting]
     Active Substance: ARIPIPRAZOLE
     Dosage: 3 MG, QD
     Route: 048
     Dates: start: 20110826, end: 20110831
  7. CLARITH [Concomitant]
     Active Substance: CLARITHROMYCIN
     Indication: PHARYNGITIS
     Route: 065
  8. ABILIFY [Suspect]
     Active Substance: ARIPIPRAZOLE
     Indication: SCHIZOPHRENIA
     Dosage: 18 MG, QD
     Route: 048
     Dates: start: 2010
  9. ABILIFY [Interacting]
     Active Substance: ARIPIPRAZOLE
     Indication: HALLUCINATION
     Dosage: 18 MG, QD
     Route: 048
     Dates: start: 20100628, end: 20110317
  10. ABILIFY [Interacting]
     Active Substance: ARIPIPRAZOLE
     Dosage: 6 MG, QD
     Route: 048
     Dates: start: 20110901, end: 20110907
  11. ABILIFY [Interacting]
     Active Substance: ARIPIPRAZOLE
     Indication: PSYCHIATRIC SYMPTOM
     Dosage: 15 MG, QD
     Route: 048
     Dates: start: 20110318, end: 20110708
  12. ABILIFY [Interacting]
     Active Substance: ARIPIPRAZOLE
     Dosage: 12 MG, QD
     Route: 048
     Dates: start: 20110709, end: 20110731
  13. ABILIFY [Interacting]
     Active Substance: ARIPIPRAZOLE
     Dosage: 9 MG, QD
     Route: 048
     Dates: start: 20110801, end: 20110804
  14. RIVOTRIL [Concomitant]
     Active Substance: CLONAZEPAM
     Indication: PSYCHOMOTOR SEIZURES
     Dosage: 1 MG, QD
     Route: 048
     Dates: start: 20110513, end: 20110804
  15. BENZALIN                           /00036201/ [Concomitant]
     Active Substance: NITRAZEPAM
     Indication: INSOMNIA
     Dosage: 10 MG, QD
     Route: 048
     Dates: start: 20100628, end: 20110804

REACTIONS (7)
  - Acute kidney injury [Recovered/Resolved]
  - Blood creatine phosphokinase increased [Recovered/Resolved]
  - Drug interaction [Recovered/Resolved]
  - Rhabdomyolysis [Recovered/Resolved]
  - Salivary hypersecretion [Recovering/Resolving]
  - Urinary retention [Recovering/Resolving]
  - Bradykinesia [Recovering/Resolving]

NARRATIVE: CASE EVENT DATE: 20110701
